FAERS Safety Report 25720617 (Version 1)
Quarter: 2025Q3

REPORT INFORMATION
  Report Type: Report from Study
  Country: EG (occurrence: EG)
  Receive Date: 20250825
  Receipt Date: 20250825
  Transmission Date: 20251020
  Serious: Yes (Life-Threatening)
  Sender: ROCHE
  Company Number: EG-ROCHE-10000370226

PATIENT
  Age: 42 Year
  Sex: Female

DRUGS (1)
  1. PHESGO [Suspect]
     Active Substance: HYALURONIDASE-ZZXF\PERTUZUMAB\TRASTUZUMAB
     Indication: Breast cancer
     Route: 058
     Dates: start: 20241113

REACTIONS (1)
  - Metastases to lung [Unknown]
